FAERS Safety Report 9006175 (Version 2)
Quarter: 2013Q1

REPORT INFORMATION
  Report Type: Spontaneous
  Country: US (occurrence: None)
  Receive Date: 20121226
  Receipt Date: 20130128
  Transmission Date: 20140127
  Serious: Yes (Other)
  Sender: FDA-Public Use
  Company Number: ADR-2012-02181

PATIENT
  Age: 6 Year
  Sex: Female
  Weight: 21 kg

DRUGS (1)
  1. LIORESAL [Suspect]
     Indication: MUSCLE SPASTICITY

REACTIONS (6)
  - Therapeutic response decreased [None]
  - Device occlusion [None]
  - Device failure [None]
  - CSF protein increased [None]
  - Pseudomeningocele [None]
  - Implant site effusion [None]
